FAERS Safety Report 5089721-8 (Version None)
Quarter: 2006Q3

REPORT INFORMATION
  Report Type: 
  Country: None (occurrence: None)
  Receive Date: 20060828
  Receipt Date: 20060816
  Transmission Date: 20061208
  Serious: Yes (Hospitalization)
  Sender: FDA-Public Use
  Company Number: PHRM2006FR02327

PATIENT
  Age: 84 Year
  Sex: Male

DRUGS (10)
  1. TEGRETOL [Suspect]
     Indication: EPILEPSY
     Dosage: 200 MG, BID
     Route: 048
  2. TEGRETOL [Suspect]
     Dosage: 0.5 TABL MORNING, 1 TAB EVENING
     Route: 048
  3. DI-ANTALVIC [Suspect]
     Dosage: 2 DF, BID
     Route: 048
     Dates: end: 20060629
  4. DEROXAT [Concomitant]
     Dosage: 1 DF, QD
     Route: 048
  5. PREVISCAN [Concomitant]
     Route: 048
  6. CORTANCYL [Concomitant]
     Dosage: 5 MG, QD
     Route: 048
     Dates: end: 20060629
  7. AMLODIPINE BESYLATE [Concomitant]
     Indication: ESSENTIAL HYPERTENSION
     Dosage: 10 MG, QD
     Route: 048
  8. DEBRIDAT [Concomitant]
     Dosage: 200 MG, BID
     Route: 048
     Dates: end: 20060629
  9. DIFFU K [Concomitant]
     Dosage: 1 DF, TID
     Route: 048
     Dates: end: 20060629
  10. FUROSEMIDE [Concomitant]
     Dosage: 20 MG, QD
     Route: 048

REACTIONS (11)
  - ANTICONVULSANT DRUG LEVEL ABOVE THERAPEUTIC [None]
  - APHASIA [None]
  - BLOOD SODIUM DECREASED [None]
  - C-REACTIVE PROTEIN INCREASED [None]
  - CARBON DIOXIDE INCREASED [None]
  - CEREBROVASCULAR ACCIDENT [None]
  - DISORIENTATION [None]
  - DRUG INTERACTION [None]
  - DYSARTHRIA [None]
  - OVERDOSE [None]
  - SOMNOLENCE [None]
